FAERS Safety Report 8834339 (Version 1)
Quarter: 2012Q4

REPORT INFORMATION
  Report Type: Spontaneous
  Country: US (occurrence: None)
  Receive Date: 20121010
  Receipt Date: 20121010
  Transmission Date: 20130627
  Serious: No
  Sender: FDA-Public Use
  Company Number: None

PATIENT
  Age: 35 Year
  Sex: Female
  Weight: 62.6 kg

DRUGS (1)
  1. MIRENA IUD [Suspect]

REACTIONS (1)
  - Uterine perforation [None]
